FAERS Safety Report 9239666 (Version 3)
Quarter: 2013Q2

REPORT INFORMATION
  Report Type: Spontaneous
  Country: US (occurrence: US)
  Receive Date: 20130418
  Receipt Date: 20130620
  Transmission Date: 20140414
  Serious: No
  Sender: FDA-Public Use
  Company Number: US-PFIZER INC-2013117946

PATIENT
  Age: 62 Year
  Sex: Female
  Weight: 78 kg

DRUGS (17)
  1. PREMARIN [Suspect]
     Indication: VULVOVAGINAL DRYNESS
     Dosage: 0.5 G, 1X/DAY
     Route: 067
     Dates: start: 20130408, end: 20130415
  2. PREMARIN [Suspect]
     Indication: ATROPHIC VULVOVAGINITIS
     Dosage: UNK
     Route: 067
     Dates: start: 201304, end: 20130415
  3. SEROQUEL [Concomitant]
     Indication: DEPRESSION
     Dosage: 600 MG, 1X/DAY (2 TABLETS OF 300MG ONCE A DAY AT NIGHT)
     Route: 048
  4. FISH OIL [Concomitant]
     Dosage: UNK
  5. VITAMIN C [Concomitant]
     Dosage: UNK
  6. ASPIRIN [Concomitant]
     Dosage: 81 MG, UNK
  7. LEVOTHYROXINE [Concomitant]
     Dosage: 0.088 MG, UNK
  8. PRAVASTATIN [Concomitant]
     Dosage: 10 MG, UNK
  9. LEXAPRO [Concomitant]
     Dosage: 30 MG, UNK
  10. LEXAPRO [Concomitant]
     Dosage: 30 MG, UNK
  11. LORAZEPAM [Concomitant]
     Indication: BIPOLAR DISORDER
     Dosage: 0.5 MG, UNK
  12. HYDROXYZINE PAMOATE [Concomitant]
     Dosage: 200 MG, UNK
  13. ATROVENT [Concomitant]
     Dosage: 0.03 %, AS NEEDED
     Route: 045
  14. ATENOLOL [Concomitant]
     Dosage: 50 MG, UNK
  15. SYNTHROID [Concomitant]
     Dosage: UNK
  16. ASA [Concomitant]
     Dosage: UNK
  17. CLOTRIMAZOLE-BETAMETHASONE [Concomitant]
     Dosage: UNK

REACTIONS (6)
  - Fatigue [Recovered/Resolved]
  - Dysuria [Not Recovered/Not Resolved]
  - Head discomfort [Unknown]
  - Headache [Recovered/Resolved]
  - Sleep disorder [Not Recovered/Not Resolved]
  - Activities of daily living impaired [Not Recovered/Not Resolved]
